FAERS Safety Report 9868938 (Version 4)
Quarter: 2014Q1

REPORT INFORMATION
  Report Type: Report from Study
  Country: CA (occurrence: CA)
  Receive Date: 20140204
  Receipt Date: 20140313
  Transmission Date: 20141002
  Serious: Yes (Hospitalization)
  Sender: FDA-Public Use
  Company Number: CA-ROCHE-1228435

PATIENT
  Age: 67 Year
  Sex: Female
  Weight: 74.8 kg

DRUGS (30)
  1. RITUXAN [Suspect]
     Indication: RHEUMATOID ARTHRITIS
     Dosage: PREVIOUS DOSE ON 15/NOV/2012, 30/MAY/2013.
     Route: 042
     Dates: start: 20110616, end: 20130530
  2. RITUXAN [Suspect]
     Route: 065
     Dates: start: 20130516
  3. RITUXAN [Suspect]
     Route: 065
     Dates: start: 20130530
  4. PREDNISONE [Suspect]
     Indication: PRODUCT USED FOR UNKNOWN INDICATION
     Route: 065
  5. DIPHENHYDRAMINE HCL [Concomitant]
     Indication: PREMEDICATION
     Route: 048
     Dates: start: 20110616
  6. ACETAMINOPHEN [Concomitant]
     Indication: PREMEDICATION
     Route: 048
     Dates: start: 20110616
  7. METHYLPREDNISOLONE [Concomitant]
     Indication: PREMEDICATION
     Route: 042
     Dates: start: 20110616
  8. OXYCONTIN [Concomitant]
  9. SULFASALAZINE [Concomitant]
  10. CARBOCAL D [Concomitant]
  11. CRESTOR [Concomitant]
  12. PANTOLOC [Concomitant]
  13. ASA [Concomitant]
  14. SYNTHROID [Concomitant]
  15. FOSAMAX [Concomitant]
  16. FOLIC ACID [Concomitant]
  17. MICARDIS [Concomitant]
  18. ESTRACE [Concomitant]
  19. LORAZEPAM [Concomitant]
  20. LYRICA [Concomitant]
  21. FUROSEMIDE [Concomitant]
  22. METHOTREXATE [Concomitant]
  23. FLOVENT [Concomitant]
  24. VENTOLIN [Concomitant]
  25. CHAMPIX [Concomitant]
  26. OXYCODONE [Concomitant]
     Dosage: AS REQUIRED
     Route: 065
  27. VENLAFAXINE [Concomitant]
  28. VALISONE [Concomitant]
     Dosage: AS REQUIRED
     Route: 065
  29. DIPROSONE CREAM [Concomitant]
     Route: 061
  30. NOVO-GESIC (CANADA) [Concomitant]

REACTIONS (10)
  - Pneumonia [Unknown]
  - Sepsis [Unknown]
  - Coma [Unknown]
  - Arthralgia [Not Recovered/Not Resolved]
  - Weight decreased [Not Recovered/Not Resolved]
  - Arthralgia [Not Recovered/Not Resolved]
  - Local swelling [Not Recovered/Not Resolved]
  - Joint swelling [Not Recovered/Not Resolved]
  - Musculoskeletal stiffness [Not Recovered/Not Resolved]
  - Joint stiffness [Not Recovered/Not Resolved]
